FAERS Safety Report 5222952-2 (Version None)
Quarter: 2007Q1

REPORT INFORMATION
  Report Type: 
  Country: None (occurrence: None)
  Receive Date: 20070129
  Receipt Date: 20070118
  Transmission Date: 20070707
  Serious: Yes (Hospitalization)
  Sender: FDA-Public Use
  Company Number: PL-PFIZER INC-2006080337

PATIENT
  Sex: Female
  Weight: 74 kg

DRUGS (3)
  1. SU-011,248 [Suspect]
     Indication: METASTATIC RENAL CELL CARCINOMA
     Route: 048
  2. EFFOX LONG [Concomitant]
     Route: 048
  3. MOLSIDOMINE [Concomitant]
     Route: 048
     Dates: start: 20060607

REACTIONS (1)
  - HYPOTONIA [None]
